FAERS Safety Report 8978947 (Version 2)
Quarter: 2013Q1

REPORT INFORMATION
  Report Type: Spontaneous
  Country: US (occurrence: US)
  Receive Date: 20121221
  Receipt Date: 20130114
  Transmission Date: 20140127
  Serious: Yes (Death, Hospitalization)
  Sender: FDA-Public Use
  Company Number: US-B.I. PHARMACEUTICALS,INC./RIDGEFIELD-2012-BI-03381BP

PATIENT
  Age: 9 Decade
  Sex: Male

DRUGS (4)
  1. PRADAXA [Suspect]
     Indication: CEREBROVASCULAR ACCIDENT PROPHYLAXIS
     Dosage: 300 MG
  2. PRADAXA [Suspect]
     Indication: ATRIAL FIBRILLATION
  3. MULTIPLE UNSPECIFIED MEDICATIONS [Concomitant]
  4. ANTIHYPERTENSIVES [Concomitant]

REACTIONS (3)
  - Fall [Fatal]
  - Embolic stroke [Fatal]
  - Haematoma [Unknown]
